FAERS Safety Report 10200700 (Version 1)
Quarter: 2014Q2

REPORT INFORMATION
  Report Type: Spontaneous
  Country: US (occurrence: US)
  Receive Date: 20140528
  Receipt Date: 20140528
  Transmission Date: 20141212
  Serious: No
  Sender: FDA-Public Use
  Company Number: US-ASTRAZENECA-2014SE34725

PATIENT
  Age: 10 Year
  Sex: Male
  Weight: 36.3 kg

DRUGS (4)
  1. SYMBICORT [Suspect]
     Indication: ASTHMA
     Dosage: 80/4.5 MCG, 2 PUFFS BID
     Route: 055
  2. SYMBICORT [Suspect]
     Indication: ASTHMA
     Dosage: 160/4.5 MCG, 2 PUFFS BID
     Route: 055
  3. ASPIRIN REGIMEN [Concomitant]
     Dosage: UNKNOWN UNK
  4. OTHER-UNSPECIFIED [Concomitant]
     Indication: HYPERSENSITIVITY
     Dosage: UNKNOWN UNK

REACTIONS (2)
  - Bronchitis [Recovering/Resolving]
  - Off label use [Unknown]
